FAERS Safety Report 9080620 (Version 2)
Quarter: 2013Q2

REPORT INFORMATION
  Report Type: Spontaneous
  Country: DK (occurrence: CA)
  Receive Date: 20130130
  Receipt Date: 20130614
  Transmission Date: 20140414
  Serious: Yes (Hospitalization, Other)
  Sender: FDA-Public Use
  Company Number: CA-FRI-1000041623

PATIENT
  Age: 90 Year
  Sex: Female

DRUGS (2)
  1. CELEXA [Suspect]
     Indication: ANXIETY
     Dosage: 20 MG
     Route: 048
     Dates: start: 201207, end: 201207
  2. ATIVAN [Suspect]
     Dosage: OVERDOSE: LORAZEPAM (5 TABLETS AT ONCE)
     Route: 048
     Dates: start: 201207, end: 201207

REACTIONS (3)
  - Suicide attempt [Recovered/Resolved]
  - Intentional self-injury [Recovered/Resolved]
  - Intentional overdose [Recovered/Resolved]
